FAERS Safety Report 5502590-4 (Version None)
Quarter: 2007Q4

REPORT INFORMATION
  Report Type: 
  Country: None (occurrence: None)
  Receive Date: 20071031
  Receipt Date: 20071025
  Transmission Date: 20080405
  Serious: Yes (Other)
  Sender: FDA-Public Use
  Company Number: PHEH2007US14046

PATIENT
  Age: 70 Year
  Sex: Female
  Weight: 43.083 kg

DRUGS (2)
  1. ZOMETA [Suspect]
     Indication: METASTASES TO BONE
     Dosage: 4 MG MONTHLY
     Dates: start: 20040802, end: 20070101
  2. AREDIA [Suspect]
     Indication: METASTASES TO BONE
     Dosage: 30 MG, UNK

REACTIONS (3)
  - OSTEONECROSIS [None]
  - TOOTH DISORDER [None]
  - WOUND DEBRIDEMENT [None]
